FAERS Safety Report 4327082-X (Version None)
Quarter: 2004Q1

REPORT INFORMATION
  Report Type: 
  Country: None (occurrence: None)
  Receive Date: 20040319
  Receipt Date: 20031230
  Transmission Date: 20041129
  Serious: No
  Sender: FDA-Public Use
  Company Number: US-JNJFOC-20040100274

PATIENT
  Age: 33 Year
  Sex: Female
  Weight: 58.9676 kg

DRUGS (2)
  1. ORTHO EVRA [Suspect]
     Indication: CONTRACEPTION
     Dosage: 1 DOSE, 3 IN 4 WEEK, TRANSDERMAL
     Route: 062
     Dates: start: 20021201
  2. ORTHO EVRA [Suspect]
     Indication: MENSTRUAL DISORDER
     Dosage: 1 DOSE, 3 IN 4 WEEK, TRANSDERMAL
     Route: 062
     Dates: start: 20021201

REACTIONS (1)
  - METRORRHAGIA [None]
